FAERS Safety Report 8808418 (Version 5)
Quarter: 2013Q1

REPORT INFORMATION
  Report Type: Report from Study
  Country: US (occurrence: US)
  Receive Date: 20120926
  Receipt Date: 20130305
  Transmission Date: 20140127
  Serious: Yes (Hospitalization)
  Sender: FDA-Public Use
  Company Number: US-PFIZER INC-2012235093

PATIENT
  Age: 70 Year
  Sex: Female
  Weight: 90.25 kg

DRUGS (14)
  1. SUTENT [Suspect]
     Indication: RENAL CELL CARCINOMA
     Dosage: 50 MG, DAILY 4 WKS ON 2 WKS OFF
     Route: 048
     Dates: start: 201209
  2. SUTENT [Suspect]
     Dosage: 37.5 MG, 1X/DAY (1 CAP 25 MG + 1 CAP 12.5 MG)
     Route: 048
     Dates: start: 20121205
  3. INVESTIGATIONAL PRODUCT [Suspect]
     Indication: RENAL CELL CARCINOMA
     Dosage: UNK
  4. LEVOTHYROXINE [Concomitant]
     Indication: THYROID DISORDER
     Dosage: 150 UG, DAILY
     Route: 048
  5. HYDROCHLOROTHIAZIDE [Concomitant]
     Indication: BLOOD PRESSURE ABNORMAL
     Dosage: 50 MG, DAILY
     Route: 048
  6. HYDROCHLOROTHIAZIDE [Concomitant]
     Dosage: UNK
  7. CYCLOBENZAPRINE [Concomitant]
     Dosage: 10 MG, 3X/DAY
     Route: 048
  8. GABAPENTIN [Concomitant]
     Dosage: 300 MG, 3X/DAY
     Route: 048
  9. PRAVASTATIN [Concomitant]
     Dosage: 80 MG, 1X/DAY
     Route: 048
  10. SERTRALINE [Concomitant]
     Indication: NERVOUS SYSTEM DISORDER
     Dosage: 25 MG, 1X/DAY
     Route: 048
  11. POTASSIUM [Concomitant]
     Indication: SUPPLEMENTATION THERAPY
     Dosage: 99 MG, 1X/DAY
     Route: 048
  12. GLUCOSAMINE [Concomitant]
     Dosage: UNK
  13. HYDROCODONE/ACETAMINOPHEN [Concomitant]
     Indication: PAIN
     Dosage: 7.5/500 MG, 1 TABLET EVERY 6 HOURS AS NEEDED
     Route: 048
  14. MAGIC MOUTHWASH [Concomitant]
     Dosage: UNK, RINSE AND SPIT WITH 5ML QID, PRN
     Dates: start: 20121127

REACTIONS (1)
  - Loss of consciousness [Recovered/Resolved]
